FAERS Safety Report 9518463 (Version 1)
Quarter: 2013Q1

REPORT INFORMATION
  Report Type: Spontaneous
  Country: US (occurrence: None)
  Receive Date: 20130305
  Receipt Date: 20130305
  Transmission Date: 20140127
  Serious: Yes (Other)
  Sender: FDA-Public Use
  Company Number: 163-21880-12081060

PATIENT
  Age: 66 Year
  Sex: Female

DRUGS (3)
  1. REVLIMID(LENALIDOMIDE) [Suspect]
     Indication: 5Q MINUS SYNDROME
     Route: 048
     Dates: start: 20080929
  2. LEVOTHYROXINE(LEVOTHYROXINE) [Concomitant]
  3. WARFARIN(WARFARIN) [Concomitant]

REACTIONS (2)
  - Full blood count decreased [None]
  - Haemoglobin decreased [None]
